FAERS Safety Report 5488303-3 (Version None)
Quarter: 2007Q4

REPORT INFORMATION
  Report Type: 
  Country: None (occurrence: None)
  Receive Date: 20071017
  Receipt Date: 20071010
  Transmission Date: 20080405
  Serious: Yes (Hospitalization)
  Sender: FDA-Public Use
  Company Number: FR-ASTRAZENECA-2007CG01449

PATIENT
  Age: 31546 Day
  Sex: Female
  Weight: 64 kg

DRUGS (4)
  1. HYTACAND [Suspect]
     Indication: HYPERTENSION
     Route: 048
  2. SECTRAL [Interacting]
     Route: 048
  3. MODOPAR [Interacting]
     Indication: PARKINSON'S DISEASE
     Dosage: 400 + 100 MG DAILY
     Route: 048
  4. LIPANOR [Concomitant]
     Route: 048

REACTIONS (5)
  - DRUG INTERACTION [None]
  - HYPONATRAEMIA [None]
  - LOSS OF CONSCIOUSNESS [None]
  - MALAISE [None]
  - ORTHOSTATIC HYPOTENSION [None]
